FAERS Safety Report 5305559-8 (Version None)
Quarter: 2007Q2

REPORT INFORMATION
  Report Type: 
  Country: None (occurrence: None)
  Receive Date: 20070424
  Receipt Date: 20070412
  Transmission Date: 20071010
  Serious: Yes (Death)
  Sender: FDA-Public Use
  Company Number: US-JNJFOC-20070402773

PATIENT
  Sex: Female
  Weight: 58.97 kg

DRUGS (13)
  1. REMICADE [Suspect]
     Indication: RHEUMATOID ARTHRITIS
     Route: 042
  2. BENECAR [Concomitant]
     Indication: BLOOD PRESSURE
  3. PLAQUENIL [Concomitant]
  4. OSTEO BI-FLEX [Concomitant]
  5. POSTURE-D [Concomitant]
  6. CENTRUM SILVER [Concomitant]
  7. TYLENOL [Concomitant]
     Dosage: UP TO 4 PER DAY
  8. MTX [Concomitant]
  9. FOLIC ACID [Concomitant]
  10. MIRALAX [Concomitant]
  11. PREVACID [Concomitant]
  12. FOSAMAX [Concomitant]
  13. NORTRIPTYLINE HCL [Concomitant]

REACTIONS (1)
  - DEATH [None]
